FAERS Safety Report 25330356 (Version 5)
Quarter: 2025Q3

REPORT INFORMATION
  Report Type: Spontaneous
  Country: CA (occurrence: CA)
  Receive Date: 20250519
  Receipt Date: 20250904
  Transmission Date: 20251021
  Serious: Yes (Death, Life-Threatening, Hospitalization, Disabling, Congenital Anomaly, Other)
  Sender: CELLTRION
  Company Number: CA-CELLTRION INC.-2025CA014491

PATIENT

DRUGS (185)
  1. ADALIMUMAB [Suspect]
     Active Substance: ADALIMUMAB
     Indication: Rheumatoid arthritis
     Route: 058
  2. ADALIMUMAB [Suspect]
     Active Substance: ADALIMUMAB
     Route: 065
  3. ADALIMUMAB [Suspect]
     Active Substance: ADALIMUMAB
     Route: 058
  4. RITUXIMAB [Suspect]
     Active Substance: RITUXIMAB
     Indication: Rheumatoid arthritis
     Route: 040
  5. RITUXIMAB [Suspect]
     Active Substance: RITUXIMAB
     Route: 043
  6. RITUXIMAB [Suspect]
     Active Substance: RITUXIMAB
     Route: 040
  7. RITUXIMAB [Suspect]
     Active Substance: RITUXIMAB
     Route: 065
  8. RITUXIMAB [Suspect]
     Active Substance: RITUXIMAB
     Route: 040
  9. RITUXIMAB [Suspect]
     Active Substance: RITUXIMAB
     Route: 058
  10. RITUXIMAB [Suspect]
     Active Substance: RITUXIMAB
     Route: 042
  11. RITUXIMAB [Suspect]
     Active Substance: RITUXIMAB
     Route: 041
  12. RITUXIMAB [Suspect]
     Active Substance: RITUXIMAB
     Route: 042
  13. RITUXIMAB [Suspect]
     Active Substance: RITUXIMAB
     Route: 042
  14. AIMOVIG [Suspect]
     Active Substance: ERENUMAB-AOOE
     Indication: Migraine
     Route: 065
  15. ALENDRONIC ACID [Suspect]
     Active Substance: ALENDRONIC ACID
     Indication: Rheumatoid arthritis
     Route: 048
  16. ALENDRONIC ACID [Suspect]
     Active Substance: ALENDRONIC ACID
     Route: 016
  17. ALENDRONIC ACID [Suspect]
     Active Substance: ALENDRONIC ACID
     Route: 065
  18. ALENDRONIC ACID [Suspect]
     Active Substance: ALENDRONIC ACID
     Route: 048
  19. ATOMOXETINE HYDROCHLORIDE [Suspect]
     Active Substance: ATOMOXETINE HYDROCHLORIDE
     Indication: Migraine
     Route: 065
  20. CANDESARTAN [Suspect]
     Active Substance: CANDESARTAN
     Indication: Migraine
     Route: 048
  21. COSENTYX [Suspect]
     Active Substance: SECUKINUMAB
     Indication: Rheumatoid arthritis
     Route: 065
  22. COSENTYX [Suspect]
     Active Substance: SECUKINUMAB
     Indication: Psoriatic arthropathy
     Route: 065
  23. DICLOFENAC POTASSIUM [Suspect]
     Active Substance: DICLOFENAC POTASSIUM
     Indication: Product used for unknown indication
     Route: 065
  24. DICLOFENAC POTASSIUM [Suspect]
     Active Substance: DICLOFENAC POTASSIUM
     Route: 065
  25. DICLOFENAC POTASSIUM [Suspect]
     Active Substance: DICLOFENAC POTASSIUM
     Route: 065
  26. DICLOFENAC POTASSIUM [Suspect]
     Active Substance: DICLOFENAC POTASSIUM
     Indication: Product used for unknown indication
     Route: 065
  27. DICLOFENAC SODIUM [Suspect]
     Active Substance: DICLOFENAC SODIUM
     Indication: Product used for unknown indication
     Route: 065
  28. DICLOFENAC SODIUM [Suspect]
     Active Substance: DICLOFENAC SODIUM
     Route: 065
  29. DICLOFENAC SODIUM [Suspect]
     Active Substance: DICLOFENAC SODIUM
     Indication: Product used for unknown indication
     Route: 065
  30. ERELZI [Suspect]
     Active Substance: ETANERCEPT-SZZS
     Indication: Rheumatoid arthritis
     Route: 065
  31. ERELZI [Suspect]
     Active Substance: ETANERCEPT-SZZS
     Route: 058
  32. ERELZI [Suspect]
     Active Substance: ETANERCEPT-SZZS
     Route: 059
  33. ERELZI [Suspect]
     Active Substance: ETANERCEPT-SZZS
     Indication: Rheumatoid arthritis
     Route: 058
  34. FOLIC ACID [Suspect]
     Active Substance: FOLIC ACID
     Indication: Rheumatoid arthritis
     Route: 048
  35. FOLIC ACID [Suspect]
     Active Substance: FOLIC ACID
     Route: 048
  36. FOLIC ACID [Suspect]
     Active Substance: FOLIC ACID
     Route: 065
  37. FOLIC ACID [Suspect]
     Active Substance: FOLIC ACID
     Route: 065
  38. FOLIC ACID [Suspect]
     Active Substance: FOLIC ACID
     Route: 048
  39. FOLIC ACID [Suspect]
     Active Substance: FOLIC ACID
     Route: 048
  40. FOLIC ACID [Suspect]
     Active Substance: FOLIC ACID
     Route: 065
  41. FOLIC ACID [Suspect]
     Active Substance: FOLIC ACID
     Route: 048
  42. FOLIC ACID [Suspect]
     Active Substance: FOLIC ACID
     Route: 065
  43. FOLIC ACID [Suspect]
     Active Substance: FOLIC ACID
     Route: 065
  44. FOLIC ACID [Suspect]
     Active Substance: FOLIC ACID
     Route: 065
  45. FOLIC ACID [Suspect]
     Active Substance: FOLIC ACID
     Route: 065
  46. FOLIC ACID [Suspect]
     Active Substance: FOLIC ACID
     Route: 065
  47. FOLIC ACID [Suspect]
     Active Substance: FOLIC ACID
     Route: 058
  48. FOLIC ACID [Suspect]
     Active Substance: FOLIC ACID
     Route: 065
  49. FOLIC ACID [Suspect]
     Active Substance: FOLIC ACID
     Route: 048
  50. FOLIC ACID [Suspect]
     Active Substance: FOLIC ACID
     Route: 065
  51. FOLIC ACID [Suspect]
     Active Substance: FOLIC ACID
     Indication: Rheumatoid arthritis
     Route: 065
  52. FOLIC ACID [Suspect]
     Active Substance: FOLIC ACID
     Route: 065
  53. FOLIC ACID [Suspect]
     Active Substance: FOLIC ACID
     Route: 048
  54. FOLIC ACID [Suspect]
     Active Substance: FOLIC ACID
     Route: 048
  55. FOLIC ACID [Suspect]
     Active Substance: FOLIC ACID
     Route: 048
  56. FOLIC ACID [Suspect]
     Active Substance: FOLIC ACID
     Route: 048
  57. FOLIC ACID [Suspect]
     Active Substance: FOLIC ACID
     Route: 065
  58. FOLIC ACID [Suspect]
     Active Substance: FOLIC ACID
     Route: 065
  59. FOLIC ACID [Suspect]
     Active Substance: FOLIC ACID
     Route: 065
  60. FOLIC ACID [Suspect]
     Active Substance: FOLIC ACID
     Route: 065
  61. FOLIC ACID [Suspect]
     Active Substance: FOLIC ACID
     Route: 065
  62. FOLIC ACID [Suspect]
     Active Substance: FOLIC ACID
     Route: 065
  63. FOLIC ACID [Suspect]
     Active Substance: FOLIC ACID
     Route: 065
  64. FOLIC ACID [Suspect]
     Active Substance: FOLIC ACID
     Route: 048
  65. FOLIC ACID [Suspect]
     Active Substance: FOLIC ACID
     Route: 065
  66. FOLIC ACID [Suspect]
     Active Substance: FOLIC ACID
     Route: 058
  67. HYDROCORTISONE [Suspect]
     Active Substance: HYDROCORTISONE
     Indication: Rheumatoid arthritis
     Route: 065
  68. LEFLUNOMIDE [Suspect]
     Active Substance: LEFLUNOMIDE
     Indication: Rheumatoid arthritis
     Route: 048
  69. LEFLUNOMIDE [Suspect]
     Active Substance: LEFLUNOMIDE
     Route: 048
  70. LEFLUNOMIDE [Suspect]
     Active Substance: LEFLUNOMIDE
     Route: 065
  71. LEFLUNOMIDE [Suspect]
     Active Substance: LEFLUNOMIDE
     Route: 065
  72. LEFLUNOMIDE [Suspect]
     Active Substance: LEFLUNOMIDE
     Route: 048
  73. LEFLUNOMIDE [Suspect]
     Active Substance: LEFLUNOMIDE
     Route: 048
  74. LEFLUNOMIDE [Suspect]
     Active Substance: LEFLUNOMIDE
     Route: 065
  75. LEFLUNOMIDE [Suspect]
     Active Substance: LEFLUNOMIDE
     Route: 065
  76. LEFLUNOMIDE [Suspect]
     Active Substance: LEFLUNOMIDE
     Indication: Rheumatoid arthritis
     Route: 065
  77. LEFLUNOMIDE [Suspect]
     Active Substance: LEFLUNOMIDE
     Route: 065
  78. LEFLUNOMIDE [Suspect]
     Active Substance: LEFLUNOMIDE
     Route: 048
  79. LEFLUNOMIDE [Suspect]
     Active Substance: LEFLUNOMIDE
     Route: 065
  80. LEFLUNOMIDE [Suspect]
     Active Substance: LEFLUNOMIDE
     Route: 065
  81. LEFLUNOMIDE [Suspect]
     Active Substance: LEFLUNOMIDE
     Route: 048
  82. LEFLUNOMIDE [Suspect]
     Active Substance: LEFLUNOMIDE
     Route: 065
  83. METHOTREXATE [Suspect]
     Active Substance: METHOTREXATE
     Indication: Rheumatoid arthritis
     Route: 058
  84. METHOTREXATE [Suspect]
     Active Substance: METHOTREXATE
     Route: 048
  85. METHOTREXATE [Suspect]
     Active Substance: METHOTREXATE
     Route: 065
  86. METHOTREXATE [Suspect]
     Active Substance: METHOTREXATE
     Route: 051
  87. METHOTREXATE [Suspect]
     Active Substance: METHOTREXATE
     Route: 048
  88. METHOTREXATE [Suspect]
     Active Substance: METHOTREXATE
     Route: 048
  89. METHOTREXATE [Suspect]
     Active Substance: METHOTREXATE
     Route: 065
  90. METHOTREXATE [Suspect]
     Active Substance: METHOTREXATE
     Route: 065
  91. METHOTREXATE [Suspect]
     Active Substance: METHOTREXATE
     Route: 065
  92. METHOTREXATE [Suspect]
     Active Substance: METHOTREXATE
     Route: 048
  93. METHOTREXATE [Suspect]
     Active Substance: METHOTREXATE
     Route: 048
  94. METHOTREXATE [Suspect]
     Active Substance: METHOTREXATE
     Route: 048
  95. METHOTREXATE [Suspect]
     Active Substance: METHOTREXATE
     Route: 048
  96. METHOTREXATE [Suspect]
     Active Substance: METHOTREXATE
     Route: 048
  97. METHOTREXATE [Suspect]
     Active Substance: METHOTREXATE
     Route: 065
  98. METHOTREXATE [Suspect]
     Active Substance: METHOTREXATE
     Route: 065
  99. METHOTREXATE [Suspect]
     Active Substance: METHOTREXATE
     Route: 048
  100. METHOTREXATE [Suspect]
     Active Substance: METHOTREXATE
     Route: 048
  101. METHOTREXATE [Suspect]
     Active Substance: METHOTREXATE
     Route: 065
  102. METHOTREXATE [Suspect]
     Active Substance: METHOTREXATE
     Route: 048
  103. METHOTREXATE [Suspect]
     Active Substance: METHOTREXATE
     Route: 048
  104. METHOTREXATE [Suspect]
     Active Substance: METHOTREXATE
     Route: 065
  105. METHOTREXATE [Suspect]
     Active Substance: METHOTREXATE
     Route: 065
  106. METHOTREXATE [Suspect]
     Active Substance: METHOTREXATE
     Route: 048
  107. METHOTREXATE [Suspect]
     Active Substance: METHOTREXATE
     Route: 065
  108. METHOTREXATE [Suspect]
     Active Substance: METHOTREXATE
     Route: 048
  109. METHOTREXATE [Suspect]
     Active Substance: METHOTREXATE
     Route: 048
  110. METHOTREXATE [Suspect]
     Active Substance: METHOTREXATE
     Route: 048
  111. METHOTREXATE [Suspect]
     Active Substance: METHOTREXATE
     Route: 058
  112. METHOTREXATE [Suspect]
     Active Substance: METHOTREXATE
     Route: 058
  113. METHOTREXATE [Suspect]
     Active Substance: METHOTREXATE
     Route: 048
  114. METHOTREXATE [Suspect]
     Active Substance: METHOTREXATE
     Route: 065
  115. METHOTREXATE [Suspect]
     Active Substance: METHOTREXATE
     Route: 065
  116. METHOTREXATE [Suspect]
     Active Substance: METHOTREXATE
     Indication: Rheumatoid arthritis
     Route: 065
  117. METHOTREXATE [Suspect]
     Active Substance: METHOTREXATE
     Route: 065
  118. METHOTREXATE [Suspect]
     Active Substance: METHOTREXATE
     Route: 065
  119. METHOTREXATE [Suspect]
     Active Substance: METHOTREXATE
     Route: 048
  120. METHOTREXATE [Suspect]
     Active Substance: METHOTREXATE
     Route: 065
  121. METHOTREXATE [Suspect]
     Active Substance: METHOTREXATE
     Route: 058
  122. METHOTREXATE [Suspect]
     Active Substance: METHOTREXATE
     Route: 048
  123. METHOTREXATE [Suspect]
     Active Substance: METHOTREXATE
     Route: 048
  124. METHOTREXATE [Suspect]
     Active Substance: METHOTREXATE
     Route: 048
  125. METHOTREXATE [Suspect]
     Active Substance: METHOTREXATE
     Route: 048
  126. METHOTREXATE [Suspect]
     Active Substance: METHOTREXATE
     Route: 065
  127. METHOTREXATE [Suspect]
     Active Substance: METHOTREXATE
     Route: 051
  128. METHOTREXATE [Suspect]
     Active Substance: METHOTREXATE
     Route: 058
  129. METHOTREXATE [Suspect]
     Active Substance: METHOTREXATE
     Route: 048
  130. METHOTREXATE [Suspect]
     Active Substance: METHOTREXATE
     Route: 048
  131. METHOTREXATE [Suspect]
     Active Substance: METHOTREXATE
     Route: 048
  132. METHOTREXATE [Suspect]
     Active Substance: METHOTREXATE
     Route: 065
  133. METHOTREXATE [Suspect]
     Active Substance: METHOTREXATE
     Route: 048
  134. METHOTREXATE [Suspect]
     Active Substance: METHOTREXATE
     Route: 065
  135. METHOTREXATE [Suspect]
     Active Substance: METHOTREXATE
     Route: 048
  136. METHOTREXATE [Suspect]
     Active Substance: METHOTREXATE
     Route: 048
  137. METHOTREXATE [Suspect]
     Active Substance: METHOTREXATE
     Route: 065
  138. METHOTREXATE [Suspect]
     Active Substance: METHOTREXATE
     Route: 048
  139. METHOTREXATE [Suspect]
     Active Substance: METHOTREXATE
     Route: 048
  140. METHOTREXATE [Suspect]
     Active Substance: METHOTREXATE
     Route: 048
  141. METHOTREXATE [Suspect]
     Active Substance: METHOTREXATE
     Route: 065
  142. METHOTREXATE [Suspect]
     Active Substance: METHOTREXATE
     Route: 065
  143. METHOTREXATE [Suspect]
     Active Substance: METHOTREXATE
     Route: 065
  144. METHOTREXATE [Suspect]
     Active Substance: METHOTREXATE
     Route: 048
  145. MYCOPHENOLATE MOFETIL [Suspect]
     Active Substance: MYCOPHENOLATE MOFETIL
     Indication: Product used for unknown indication
     Route: 065
  146. OXYCODONE HYDROCHLORIDE [Suspect]
     Active Substance: OXYCODONE HYDROCHLORIDE
     Indication: Product used for unknown indication
     Route: 065
  147. OXYCODONE TEREPHTHALATE [Suspect]
     Active Substance: OXYCODONE TEREPHTHALATE
     Indication: Product used for unknown indication
     Route: 065
  148. QUETIAPINE FUMARATE [Suspect]
     Active Substance: QUETIAPINE FUMARATE
     Indication: Product used for unknown indication
     Route: 065
  149. ALENDRONIC ACID [Suspect]
     Active Substance: ALENDRONIC ACID
     Indication: Rheumatoid arthritis
     Route: 048
  150. ALENDRONIC ACID [Suspect]
     Active Substance: ALENDRONIC ACID
     Route: 065
  151. ALENDRONIC ACID [Suspect]
     Active Substance: ALENDRONIC ACID
     Route: 016
  152. ALENDRONIC ACID [Suspect]
     Active Substance: ALENDRONIC ACID
     Route: 048
  153. COSENTYX [Suspect]
     Active Substance: SECUKINUMAB
     Indication: Rheumatoid arthritis
     Route: 065
  154. COSENTYX [Suspect]
     Active Substance: SECUKINUMAB
     Indication: Psoriatic arthropathy
     Route: 065
  155. COSENTYX [Suspect]
     Active Substance: SECUKINUMAB
     Route: 065
  156. COSENTYX [Suspect]
     Active Substance: SECUKINUMAB
     Route: 065
  157. DICLOFENAC POTASSIUM [Suspect]
     Active Substance: DICLOFENAC POTASSIUM
     Indication: Product used for unknown indication
     Route: 065
  158. DICLOFENAC POTASSIUM [Suspect]
     Active Substance: DICLOFENAC POTASSIUM
     Route: 065
  159. DICLOFENAC POTASSIUM [Suspect]
     Active Substance: DICLOFENAC POTASSIUM
     Route: 065
  160. OXYCODONE [Suspect]
     Active Substance: OXYCODONE
     Indication: Product used for unknown indication
     Route: 065
  161. DICLOFENAC DIETHYLAMINE [Suspect]
     Active Substance: DICLOFENAC DIETHYLAMINE
     Indication: Product used for unknown indication
     Route: 065
  162. ALENDRONATE SODIUM [Suspect]
     Active Substance: ALENDRONATE SODIUM
     Indication: Rheumatoid arthritis
     Route: 048
  163. ALENDRONATE SODIUM [Suspect]
     Active Substance: ALENDRONATE SODIUM
     Route: 016
  164. ALENDRONATE SODIUM [Suspect]
     Active Substance: ALENDRONATE SODIUM
     Route: 065
  165. ALENDRONATE SODIUM [Suspect]
     Active Substance: ALENDRONATE SODIUM
     Indication: Rheumatoid arthritis
     Route: 065
  166. ATOMOXETINE HYDROCHLORIDE [Suspect]
     Active Substance: ATOMOXETINE HYDROCHLORIDE
     Indication: Migraine
     Route: 065
  167. HYRIMOZ [Suspect]
     Active Substance: ADALIMUMAB-ADAZ
     Indication: Rheumatoid arthritis
     Route: 065
  168. HYRIMOZ [Suspect]
     Active Substance: ADALIMUMAB-ADAZ
     Indication: Rheumatoid arthritis
     Route: 065
  169. HYRIMOZ [Suspect]
     Active Substance: ADALIMUMAB-ADAZ
     Route: 059
  170. HYRIMOZ [Suspect]
     Active Substance: ADALIMUMAB-ADAZ
     Route: 059
  171. HYRIMOZ [Suspect]
     Active Substance: ADALIMUMAB-ADAZ
     Route: 065
  172. DICLOFENAC SODIUM [Suspect]
     Active Substance: DICLOFENAC SODIUM
     Indication: Product used for unknown indication
     Route: 065
  173. DICLOFENAC SODIUM [Suspect]
     Active Substance: DICLOFENAC SODIUM
     Indication: Product used for unknown indication
     Route: 065
  174. HYDROCORTISONE [Suspect]
     Active Substance: HYDROCORTISONE
     Indication: Rheumatoid arthritis
     Route: 065
  175. LEFLUNOMIDE [Suspect]
     Active Substance: LEFLUNOMIDE
     Indication: Rheumatoid arthritis
     Route: 065
  176. LEFLUNOMIDE [Suspect]
     Active Substance: LEFLUNOMIDE
     Route: 065
  177. LEFLUNOMIDE [Suspect]
     Active Substance: LEFLUNOMIDE
     Route: 048
  178. LEFLUNOMIDE [Suspect]
     Active Substance: LEFLUNOMIDE
     Route: 065
  179. LEFLUNOMIDE [Suspect]
     Active Substance: LEFLUNOMIDE
     Route: 065
  180. LEFLUNOMIDE [Suspect]
     Active Substance: LEFLUNOMIDE
     Route: 065
  181. LEFLUNOMIDE [Suspect]
     Active Substance: LEFLUNOMIDE
     Route: 048
  182. LEFLUNOMIDE [Suspect]
     Active Substance: LEFLUNOMIDE
     Indication: Rheumatoid arthritis
     Route: 048
  183. MYCOPHENOLATE MOFETIL [Suspect]
     Active Substance: MYCOPHENOLATE MOFETIL
     Indication: Product used for unknown indication
     Route: 065
  184. ERELZI [Concomitant]
     Active Substance: ETANERCEPT-SZZS
     Indication: Rheumatoid arthritis
     Route: 065
  185. ERELZI [Concomitant]
     Active Substance: ETANERCEPT-SZZS
     Route: 065

REACTIONS (27)
  - Abdominal pain upper [Fatal]
  - Dry mouth [Fatal]
  - Dyspepsia [Fatal]
  - Facet joint syndrome [Fatal]
  - Gait inability [Fatal]
  - Hypercholesterolaemia [Fatal]
  - Hypoaesthesia [Fatal]
  - Impaired healing [Fatal]
  - Inflammation [Fatal]
  - Irritable bowel syndrome [Fatal]
  - Lip dry [Fatal]
  - Lower limb fracture [Fatal]
  - Lung disorder [Fatal]
  - Muscle injury [Fatal]
  - Muscle spasms [Fatal]
  - Musculoskeletal pain [Fatal]
  - Oedema [Fatal]
  - Pulmonary fibrosis [Fatal]
  - Road traffic accident [Fatal]
  - Folliculitis [Fatal]
  - Lower respiratory tract infection [Fatal]
  - Incorrect route of product administration [Fatal]
  - Prescribed overdose [Fatal]
  - Prescribed underdose [Fatal]
  - Underdose [Unknown]
  - Intentional product use issue [Unknown]
  - Intentional product use issue [Unknown]
